FAERS Safety Report 9483271 (Version 2)
Quarter: 2013Q3

REPORT INFORMATION
  Report Type: Spontaneous
  Country: US (occurrence: US)
  Receive Date: 20130828
  Receipt Date: 20130828
  Transmission Date: 20140515
  Serious: Yes (Death, Hospitalization)
  Sender: FDA-Public Use
  Company Number: US-AMGEN-KDL245651

PATIENT
  Age: 75 Year
  Sex: Female
  Weight: 115.8 kg

DRUGS (7)
  1. ENBREL [Suspect]
     Indication: RHEUMATOID ARTHRITIS
     Dosage: 50 MG, QWK
     Route: 058
     Dates: start: 20040614, end: 20070216
  2. SALSALATE [Concomitant]
     Dosage: 750 MG, UNK
  3. RANITIDINE [Concomitant]
     Dosage: 150 MG, UNK
  4. PREDNISONE [Concomitant]
     Dosage: 5 MG, UNK
  5. ATENOLOL [Concomitant]
  6. NIFEDIPINE [Concomitant]
  7. FLUOXETINE [Concomitant]

REACTIONS (5)
  - Death [Fatal]
  - Renal cancer metastatic [Fatal]
  - Hepatic mass [Fatal]
  - Abdominal pain upper [Fatal]
  - Diarrhoea [Fatal]
